FAERS Safety Report 10667720 (Version 3)
Quarter: 2015Q1

REPORT INFORMATION
  Report Type: Report from Study
  Country: JP (occurrence: JP)
  Receive Date: 20141222
  Receipt Date: 20150206
  Transmission Date: 20150720
  Serious: Yes (Death, Hospitalization)
  Sender: FDA-Public Use
  Company Number: JP-PFIZER INC-2014347075

PATIENT
  Age: 74 Year
  Sex: Female
  Weight: 47 kg

DRUGS (24)
  1. GASMOTIN [Concomitant]
     Active Substance: MOSAPRIDE CITRATE
     Dosage: 5 MG, 3X/DAY
     Route: 048
     Dates: end: 20130318
  2. PURSENNIDE [Concomitant]
     Active Substance: SENNOSIDES A AND B
     Dosage: 24 MG, AS NEEDED
     Route: 048
     Dates: end: 20130318
  3. CRIZOTINIB [Suspect]
     Active Substance: CRIZOTINIB
     Dosage: 200 MG, 3 TIMES WEEKLY
     Route: 048
     Dates: start: 20130227, end: 20130315
  4. VONFENAC [Concomitant]
     Dosage: 25 MG, AS NEEDED
     Route: 054
     Dates: end: 20130223
  5. CRIZOTINIB [Suspect]
     Active Substance: CRIZOTINIB
     Dosage: 200 MG, 2X/DAY
     Route: 048
     Dates: start: 20121222, end: 20130130
  6. HYPEN [Concomitant]
     Active Substance: ETODOLAC
     Dosage: 200 MG, 2X/DAY
     Route: 048
     Dates: end: 20121211
  7. DIART [Concomitant]
     Active Substance: AZOSEMIDE
     Dosage: 30 MG, 1X/DAY
     Route: 048
     Dates: start: 20121025, end: 20121205
  8. DAI-KENCHU-TO [Concomitant]
     Active Substance: MALTOSE
     Dosage: 2.5 G, 3X/DAY
     Route: 048
     Dates: end: 20130318
  9. MUCOSTA [Concomitant]
     Active Substance: REBAMIPIDE
     Dosage: 100 MG, 3X/DAY
     Route: 048
     Dates: end: 20130318
  10. RANMARK [Concomitant]
     Active Substance: DENOSUMAB
     Dosage: 120 MG, EVER 4 WEEKS
  11. NICORANDIL [Concomitant]
     Active Substance: NICORANDIL
     Dosage: 5 MG, 3X/DAY
     Route: 048
     Dates: end: 20121211
  12. BAYASPIRIN [Concomitant]
     Active Substance: ASPIRIN
     Dosage: 100 MG, 1X/DAY
     Route: 048
     Dates: end: 20121211
  13. HOKUNALIN [Concomitant]
     Active Substance: TULOBUTEROL
     Dosage: 2 MG, 1X/DAY
     Route: 062
     Dates: end: 20121026
  14. MIYA-BM [Concomitant]
     Active Substance: CLOSTRIDIUM BUTYRICUM SPORES STRAIN M-55
     Dosage: 1 G, 3X/DAY
     Route: 048
     Dates: end: 20130318
  15. PRIMPERAN [Concomitant]
     Active Substance: METOCLOPRAMIDE HYDROCHLORIDE
     Dosage: 10 MG, 1X/DAY
     Dates: end: 20121030
  16. VEEN D [Concomitant]
     Active Substance: CALCIUM CHLORIDE\DEXTROSE\POTASSIUM CHLORIDE\SODIUM ACETATE\SODIUM CHLORIDE
     Dosage: 500 ML, 1X/DAY
     Dates: end: 20121125
  17. LIVALO [Concomitant]
     Active Substance: PITAVASTATIN CALCIUM
     Dosage: 2 MG, 1X/DAY
     Route: 048
     Dates: end: 20130318
  18. HERBESSER [Concomitant]
     Active Substance: DILTIAZEM HYDROCHLORIDE
     Dosage: 100 MG, 1X/DAY
     Route: 048
     Dates: end: 20130319
  19. TAKEPRON [Concomitant]
     Active Substance: LANSOPRAZOLE
     Dosage: 15 MG, 1X/DAY
     Route: 048
     Dates: end: 20130318
  20. CRIZOTINIB [Suspect]
     Active Substance: CRIZOTINIB
     Indication: NON-SMALL CELL LUNG CANCER
     Dosage: 250 MG, 2X/DAY
     Route: 048
     Dates: start: 20121023, end: 20121203
  21. DEPAS [Concomitant]
     Active Substance: ETIZOLAM
     Dosage: 0.5 MG, 1 TO 3 TIMES DAILY
     Route: 048
     Dates: end: 20130318
  22. DENOTAS [Concomitant]
     Active Substance: CALCIUM CARBONATE\CHOLECALCIFEROL\MAGNESIUM CARBONATE
     Dosage: 2 DF, 1X/DAY
     Route: 048
     Dates: start: 20121107, end: 20130207
  23. NEW LECICARBON [Concomitant]
     Active Substance: SODIUM BICARBONATE\SODIUM PHOSPHATE, MONOBASIC
     Dosage: 1 DF, AS NEEDED
     Route: 054
     Dates: end: 20130222
  24. AMARYL [Concomitant]
     Active Substance: GLIMEPIRIDE
     Dosage: 1 MG, 1X/DAY
     Route: 048
     Dates: end: 20121214

REACTIONS (4)
  - Oedema peripheral [Not Recovered/Not Resolved]
  - Non-small cell lung cancer [Fatal]
  - Deep vein thrombosis [Recovering/Resolving]
  - Disease progression [Fatal]

NARRATIVE: CASE EVENT DATE: 20121023
